FAERS Safety Report 13461629 (Version 2)
Quarter: 2017Q2

REPORT INFORMATION
  Report Type: Spontaneous
  Country: US (occurrence: US)
  Receive Date: 20170420
  Receipt Date: 20170428
  Transmission Date: 20170830
  Serious: No
  Sender: FDA-Public Use
  Company Number: US-BAYER-2017-075454

PATIENT
  Age: 77 Year
  Sex: Female
  Weight: 69.98 kg

DRUGS (2)
  1. ATIVAN [Concomitant]
     Active Substance: LORAZEPAM
     Dosage: UNK
  2. CLARITIN-D 24 HOUR [Suspect]
     Active Substance: LORATADINE\PSEUDOEPHEDRINE SULFATE
     Dosage: 1 DF, UNK
     Route: 048
     Dates: start: 20170418, end: 20170419

REACTIONS (4)
  - Drug ineffective [Not Recovered/Not Resolved]
  - Physical product label issue [None]
  - Drug ineffective [Unknown]
  - Product use in unapproved indication [None]

NARRATIVE: CASE EVENT DATE: 20170418
